FAERS Safety Report 9728258 (Version 1)
Quarter: 2013Q4

REPORT INFORMATION
  Report Type: Spontaneous
  Country: US (occurrence: None)
  Receive Date: 20131203
  Receipt Date: 20131203
  Transmission Date: 20140711
  Serious: Yes (Death, Hospitalization)
  Sender: FDA-Public Use
  Company Number: None

PATIENT
  Age: 1 Year
  Sex: Female
  Weight: 14.6 kg

DRUGS (6)
  1. DANNORUBICIN [Suspect]
     Dates: end: 20131108
  2. DEXAMETHASONE [Suspect]
  3. METHOTREXATE [Suspect]
     Dates: end: 20131108
  4. PEG-L-ASPARAGINASE [Suspect]
     Dates: end: 20131104
  5. VINCRISTINE SULFATE [Suspect]
     Dates: end: 20131108
  6. CYTARABINE [Suspect]
     Dates: end: 20131030

REACTIONS (5)
  - Tachycardia [None]
  - Pyrexia [None]
  - Cellulitis orbital [None]
  - Aspergillus infection [None]
  - Necrosis [None]
